FAERS Safety Report 11099064 (Version 2)
Quarter: 2015Q2

REPORT INFORMATION
  Report Type: Spontaneous
  Country: US (occurrence: US)
  Receive Date: 20150508
  Receipt Date: 20150514
  Transmission Date: 20150821
  Serious: Yes (Other)
  Sender: FDA-Public Use
  Company Number: US-RB-076643-15

PATIENT
  Age: 75 Year
  Sex: Female

DRUGS (3)
  1. MUCINEX DM MAXIMUM STRENGTH [Suspect]
     Active Substance: DEXTROMETHORPHAN HYDROBROMIDE\GUAIFENESIN
     Indication: RESPIRATORY TRACT CONGESTION
     Dosage: PATIENT TOOK LAST ON 22-APR-2015 AT 01:00 PM.
     Route: 065
     Dates: start: 20150422
  2. MUCINEX DM MAXIMUM STRENGTH [Suspect]
     Active Substance: DEXTROMETHORPHAN HYDROBROMIDE\GUAIFENESIN
     Indication: SINUS CONGESTION
     Dosage: PATIENT TOOK LAST ON 22-APR-2015 AT 01:00 PM.
     Route: 065
     Dates: start: 20150422
  3. MUCINEX DM MAXIMUM STRENGTH [Suspect]
     Active Substance: DEXTROMETHORPHAN HYDROBROMIDE\GUAIFENESIN
     Indication: NASAL CONGESTION
     Dosage: PATIENT TOOK LAST ON 22-APR-2015 AT 01:00 PM.
     Route: 065
     Dates: start: 20150422

REACTIONS (2)
  - Feeling abnormal [Recovered/Resolved]
  - Confusional state [Recovered/Resolved]

NARRATIVE: CASE EVENT DATE: 20150422
